FAERS Safety Report 9799931 (Version 1)
Quarter: 2014Q1

REPORT INFORMATION
  Report Type: Report from Study
  Country: US (occurrence: US)
  Receive Date: 20140106
  Receipt Date: 20140106
  Transmission Date: 20141002
  Serious: Yes (Other)
  Sender: FDA-Public Use
  Company Number: US-US-EMD SERONO, INC.-7260658

PATIENT
  Age: 52 Year
  Sex: Male

DRUGS (5)
  1. SEROSTIM [(SOMATROPIN (RDNA ORIGIN) FOR INJECTION)] [Suspect]
     Indication: HIV WASTING SYNDROME
     Route: 058
     Dates: start: 20120124
  2. COMPAZINE                          /00013302/ [Concomitant]
     Indication: NAUSEA
  3. NICODERM [Concomitant]
     Indication: TOBACCO ABUSE
  4. PERCOCET                           /00446701/ [Concomitant]
     Indication: NEUROPATHY PERIPHERAL
  5. MARINOL [Concomitant]
     Indication: NAUSEA

REACTIONS (7)
  - Cellulitis [Unknown]
  - Substance abuse [Unknown]
  - Lumbar spinal stenosis [Unknown]
  - Appetite disorder [Recovering/Resolving]
  - Affective disorder [Recovering/Resolving]
  - Back pain [Recovering/Resolving]
  - Arthralgia [Recovering/Resolving]
